FAERS Safety Report 19071421 (Version 5)
Quarter: 2021Q4

REPORT INFORMATION
  Report Type: Spontaneous
  Country: US (occurrence: US)
  Receive Date: 20210330
  Receipt Date: 20211222
  Transmission Date: 20220303
  Serious: No
  Sender: FDA-Public Use
  Company Number: US-SA-SAC20210324001207

PATIENT
  Age: 65 Year
  Sex: Female

DRUGS (26)
  1. LUMIZYME [Suspect]
     Active Substance: ALGLUCOSIDASE ALFA
     Indication: Glycogen storage disease type II
     Dosage: 2150 MG, QOW
     Route: 042
     Dates: start: 20201118
  2. ZOFRAN [Concomitant]
     Active Substance: ONDANSETRON HYDROCHLORIDE
     Dosage: UNK
  3. DIPHENHYDRAMINE [Concomitant]
     Active Substance: DIPHENHYDRAMINE
  4. ASPIRIN [Concomitant]
     Active Substance: ASPIRIN
  5. IODINE [Concomitant]
     Active Substance: IODINE
  6. CODEINE PHOSPHATE [Concomitant]
     Active Substance: CODEINE PHOSPHATE
  7. ACETAMINOPHEN [Concomitant]
     Active Substance: ACETAMINOPHEN
  8. PENICILLIN [Concomitant]
     Active Substance: PENICILLIN
  9. HEPARIN [Concomitant]
     Active Substance: HEPARIN SODIUM
  10. LIDOCAINE [Concomitant]
     Active Substance: LIDOCAINE
  11. SODIUM CHLORIDE [Concomitant]
     Active Substance: SODIUM CHLORIDE
  12. EPINEPHRINE [Concomitant]
     Active Substance: EPINEPHRINE
  13. METOPROLOL [Concomitant]
     Active Substance: METOPROLOL
  14. IBUPROFEN [Concomitant]
     Active Substance: IBUPROFEN
  15. TRAMADOL [Concomitant]
     Active Substance: TRAMADOL
     Indication: Pain
  16. CITALOPRAM [Concomitant]
     Active Substance: CITALOPRAM HYDROBROMIDE
  17. LORAZEPAM [Concomitant]
     Active Substance: LORAZEPAM
  18. KLOR-CON [Concomitant]
     Active Substance: POTASSIUM CHLORIDE
  19. HYDROCHLOROTHIAZIDE [Concomitant]
     Active Substance: HYDROCHLOROTHIAZIDE
  20. BUPROPION [Concomitant]
     Active Substance: BUPROPION
  21. CLARITIN [Concomitant]
     Active Substance: LORATADINE
  22. STERILE WATER [Concomitant]
     Active Substance: WATER
  23. PFIZER-BIONTECH COVID-19 VACCINE [Concomitant]
     Active Substance: TOZINAMERAN
     Indication: COVID-19 immunisation
  24. ALBUTEROL SULFATE [Concomitant]
     Active Substance: ALBUTEROL SULFATE
     Dosage: UNK
  25. LORATADINE [Concomitant]
     Active Substance: LORATADINE
     Dosage: UNK
  26. COVID-19 VACCINE [Concomitant]

REACTIONS (9)
  - Pain [Unknown]
  - Hypoaesthesia [Unknown]
  - Paraesthesia [Unknown]
  - Headache [Unknown]
  - Pruritus [Unknown]
  - Fall [Unknown]
  - Arthralgia [Unknown]
  - Erythema [Unknown]
  - Contusion [Unknown]
